FAERS Safety Report 8275722-5 (Version None)
Quarter: 2012Q2

REPORT INFORMATION
  Report Type: 
  Country: None (occurrence: None)
  Receive Date: 20120410
  Receipt Date: 20120410
  Transmission Date: 20120825
  Serious: Yes (Hospitalization)
  Sender: FDA-Public Use
  Company Number: None

PATIENT
  Age: 4 Year
  Sex: Male
  Weight: 29 kg

DRUGS (1)
  1. USTEKINUMAB [Suspect]
     Indication: PUSTULAR PSORIASIS
     Dosage: 0.9 MG/KG/EVERY 9 WEEKS
     Dates: start: 20100601

REACTIONS (2)
  - PSORIASIS [None]
  - CONDITION AGGRAVATED [None]
